FAERS Safety Report 7723820-4 (Version None)
Quarter: 2011Q3

REPORT INFORMATION
  Report Type: 
  Country: None (occurrence: None)
  Receive Date: 20110826
  Receipt Date: 20110819
  Transmission Date: 20111222
  Serious: Yes (Hospitalization)
  Sender: FDA-Public Use
  Company Number: US-001935

PATIENT
  Sex: Female

DRUGS (3)
  1. NAGLAZYME [Suspect]
     Indication: MUCOPOLYSACCHARIDOSIS VI
     Dosage: (1 MG/KG 1X/WEEK INTRAVENOUS DRIP)
     Route: 041
     Dates: start: 20090409
  2. ANTIHISTAMINES [Concomitant]
  3. NSAID'S [Concomitant]

REACTIONS (1)
  - TOOTH DISORDER [None]
